FAERS Safety Report 8835083 (Version 1)
Quarter: 2012Q4

REPORT INFORMATION
  Report Type: 
  Country: US (occurrence: US)
  Receive Date: 20121010
  Receipt Date: 20121010
  Transmission Date: 20130627
  Serious: No
  Sender: FDA-Public Use
  Company Number: US-BAYER-2012-103609

PATIENT
  Age: 65 Year
  Sex: Male
  Weight: 74.83 kg

DRUGS (1)
  1. ALEVE CAPLET/TABLET,MIDOL EXTENDED RELIEF CAPLET [Suspect]
     Indication: BACK PAIN
     Dosage: 3 DF, UNK
     Route: 048
     Dates: start: 20120927, end: 20120928

REACTIONS (6)
  - Hypersensitivity [Not Recovered/Not Resolved]
  - Urticaria [Not Recovered/Not Resolved]
  - Rash generalised [Not Recovered/Not Resolved]
  - Swelling face [Not Recovered/Not Resolved]
  - Pruritus generalised [Not Recovered/Not Resolved]
  - Blister [Not Recovered/Not Resolved]
